FAERS Safety Report 4513340-2 (Version None)
Quarter: 2004Q4

REPORT INFORMATION
  Report Type: 
  Country: None (occurrence: None)
  Receive Date: 20041130
  Receipt Date: 20040817
  Transmission Date: 20050328
  Serious: Yes (Life-Threatening)
  Sender: FDA-Public Use
  Company Number: US-BRISTOL-MYERS SQUIBB COMPANY-12672671

PATIENT
  Age: 59 Year
  Sex: Female
  Weight: 69 kg

DRUGS (9)
  1. ERBITUX [Suspect]
     Indication: COLORECTAL CANCER METASTATIC
     Route: 042
     Dates: start: 20040810, end: 20040810
  2. DEXAMETHASONE [Concomitant]
     Dates: start: 20040810, end: 20040810
  3. DIPHENHYDRAMINE [Concomitant]
     Dates: start: 20040810, end: 20040810
  4. DOLASETRON [Concomitant]
     Dates: start: 20040810, end: 20040810
  5. ATENOLOL [Concomitant]
  6. CLONIDINE [Concomitant]
  7. ENALAPRIL [Concomitant]
  8. FUROSEMIDE [Concomitant]
  9. POTASSIUM SUPPLEMENT [Concomitant]

REACTIONS (1)
  - HYPERSENSITIVITY [None]
